FAERS Safety Report 25250219 (Version 1)
Quarter: 2025Q2

REPORT INFORMATION
  Report Type: Spontaneous
  Country: US (occurrence: US)
  Receive Date: 20250429
  Receipt Date: 20250429
  Transmission Date: 20250717
  Serious: Yes (Other)
  Sender: AUROBINDO
  Company Number: US-APOTEX-2013AP007319

PATIENT
  Age: 62 Year
  Sex: Female

DRUGS (3)
  1. ZOLPIDEM TARTRATE [Interacting]
     Active Substance: ZOLPIDEM TARTRATE
     Indication: Insomnia
     Route: 065
  2. ZOLPIDEM TARTRATE [Interacting]
     Active Substance: ZOLPIDEM TARTRATE
     Route: 065
  3. PAROXETINE [Interacting]
     Active Substance: PAROXETINE
     Indication: Anxiety
     Route: 065

REACTIONS (7)
  - Major depression [Unknown]
  - Delirium [Unknown]
  - Homicide [Unknown]
  - Disorientation [Unknown]
  - Drug interaction [Unknown]
  - Overdose [Unknown]
  - Suicidal behaviour [Unknown]
